FAERS Safety Report 9086880 (Version 1)
Quarter: 2013Q1

REPORT INFORMATION
  Report Type: Report from Study
  Country: None (occurrence: US)
  Receive Date: 20130131
  Receipt Date: 20130131
  Transmission Date: 20140127
  Serious: Yes (Hospitalization)
  Sender: FDA-Public Use
  Company Number: US-ABBOTT-12P-163-0977895-00

PATIENT
  Age: 58 Year
  Sex: Male
  Weight: 89.89 kg

DRUGS (1)
  1. HUMIRA [Suspect]
     Indication: RHEUMATOID ARTHRITIS
     Route: 058
     Dates: start: 20120601, end: 20120801

REACTIONS (3)
  - Staphylococcal infection [Unknown]
  - Subdural empyema [Unknown]
  - Staphylococcal infection [Unknown]
